FAERS Safety Report 13068283 (Version 1)
Quarter: 2016Q4

REPORT INFORMATION
  Report Type: Report from Study
  Country: US (occurrence: US)
  Receive Date: 20161228
  Receipt Date: 20161228
  Transmission Date: 20170207
  Serious: Yes (Other)
  Sender: FDA-Public Use
  Company Number: US-MALLINCKRODT-T201606652

PATIENT
  Age: 50 Year
  Sex: Female

DRUGS (1)
  1. REPOSITORY CORTICOTROPIN INJECTION [Suspect]
     Active Substance: CORTICOTROPIN
     Indication: SYSTEMIC LUPUS ERYTHEMATOSUS
     Dosage: 80 UNITS / 1 ML, 2 TIMES PER WEEK, TUES/FRI
     Route: 058
     Dates: start: 20160329

REACTIONS (4)
  - Systemic lupus erythematosus [Unknown]
  - Constipation [Unknown]
  - Abdominal pain upper [Recovering/Resolving]
  - Gastrointestinal infection [Not Recovered/Not Resolved]

NARRATIVE: CASE EVENT DATE: 20161210
